FAERS Safety Report 6064766-X (Version None)
Quarter: 2009Q1

REPORT INFORMATION
  Report Type: 
  Country: None (occurrence: None)
  Receive Date: 20090204
  Receipt Date: 20081107
  Transmission Date: 20090719
  Serious: Yes (Hospitalization)
  Sender: FDA-Public Use
  Company Number: A0755394A

PATIENT
  Age: 79 Year

DRUGS (2)
  1. ARIXTRA [Suspect]
  2. COUMADIN [Concomitant]

REACTIONS (1)
  - CEREBRAL HAEMORRHAGE [None]
